FAERS Safety Report 6162302-0 (Version None)
Quarter: 2009Q2

REPORT INFORMATION
  Report Type: 
  Country: None (occurrence: None)
  Receive Date: 20090421
  Receipt Date: 20090410
  Transmission Date: 20091009
  Serious: Yes (Hospitalization)
  Sender: FDA-Public Use
  Company Number: KR-BRISTOL-MYERS SQUIBB COMPANY-14585020

PATIENT
  Age: 64 Year
  Sex: Male
  Weight: 59 kg

DRUGS (3)
  1. CETUXIMAB [Suspect]
     Indication: GASTROOESOPHAGEAL CANCER
     Dosage: RECENT INF:2APR09.STRENGTH: 5 MG/ML. INTERRUPTED ON 09APR09.
     Route: 042
     Dates: start: 20090218
  2. CISPLATIN [Suspect]
     Indication: GASTROOESOPHAGEAL CANCER
     Dosage: RECENT INF: 19MAR09; DAY 1 OF CYCLE
     Route: 042
     Dates: start: 20090218
  3. CAPECITABINE [Suspect]
     Indication: GASTROOESOPHAGEAL CANCER
     Dosage: RECENT INF: 2APR09; DAY 1-15. INTERRUPTED ON 09APR09.
     Route: 048
     Dates: start: 20090218

REACTIONS (1)
  - ATRIAL THROMBOSIS [None]
